FAERS Safety Report 9695575 (Version 3)
Quarter: 2013Q4

REPORT INFORMATION
  Report Type: Report from Study
  Country: DE (occurrence: DE)
  Receive Date: 20131119
  Receipt Date: 20131206
  Transmission Date: 20140711
  Serious: Yes (Death, Other)
  Sender: FDA-Public Use
  Company Number: DE-ABBVIE-12P-062-0990601-00

PATIENT
  Age: 74 Year
  Sex: Male

DRUGS (6)
  1. LEUPRORELIN [Suspect]
     Indication: PROSTATE CANCER
     Route: 058
     Dates: start: 20120510, end: 20130417
  2. ANTIANDROGENS [Concomitant]
     Indication: PROSTATE CANCER
     Route: 065
     Dates: start: 20120510
  3. ZYTIGA [Concomitant]
     Indication: PROSTATE CANCER
     Route: 065
  4. ZYTIGA [Concomitant]
     Indication: ANTIANDROGEN THERAPY
  5. PREDNISON [Concomitant]
     Indication: PROSTATE CANCER
     Route: 065
  6. XGEVA [Concomitant]
     Indication: PRODUCT USED FOR UNKNOWN INDICATION
     Route: 065

REACTIONS (11)
  - Death [Fatal]
  - Haemoglobin decreased [Unknown]
  - Pathological fracture [Unknown]
  - Bone pain [Unknown]
  - Prostate cancer [Unknown]
  - Blood lactate dehydrogenase increased [Unknown]
  - Blood alkaline phosphatase increased [Unknown]
  - General physical health deterioration [Unknown]
  - Gamma-glutamyltransferase increased [Unknown]
  - Alanine aminotransferase increased [Unknown]
  - Aspartate aminotransferase increased [Unknown]
